FAERS Safety Report 19941021 (Version 1)
Quarter: 2021Q4

REPORT INFORMATION
  Report Type: Spontaneous
  Country: US (occurrence: US)
  Receive Date: 20211012
  Receipt Date: 20211012
  Transmission Date: 20220303
  Serious: No
  Sender: FDA-Public Use
  Company Number: US-DRREDDYS-SPO/USA/21/0142498

PATIENT
  Age: 19 Year
  Sex: Male

DRUGS (1)
  1. ZENATANE [Suspect]
     Active Substance: ISOTRETINOIN
     Indication: Product used for unknown indication
     Dosage: RMA ISSUE DATE:8 JUNE 2020 12:00:00 AM,19 JULY 2021 12:00:00 AM,24 AUGUST 2021 12:00:00 AM,21 SEPTEM

REACTIONS (1)
  - Fatigue [Unknown]
